FAERS Safety Report 5208703-6 (Version None)
Quarter: 2007Q1

REPORT INFORMATION
  Report Type: 
  Country: None (occurrence: None)
  Receive Date: 20070116
  Receipt Date: 20070108
  Transmission Date: 20070707
  Serious: Yes (Hospitalization)
  Sender: FDA-Public Use
  Company Number: US-JNJFOC-20070102195

PATIENT
  Sex: Female
  Weight: 53.52 kg

DRUGS (3)
  1. DURAGESIC-100 [Suspect]
     Indication: HERPES ZOSTER
     Route: 062
  2. FENTANYL TRANSDERMAL SYSTEM [Suspect]
     Indication: BACK PAIN
     Route: 062
  3. TOPROL-XL [Concomitant]
     Indication: HYPERTENSION
     Route: 048

REACTIONS (5)
  - BLOOD PRESSURE INCREASED [None]
  - CEREBROVASCULAR ACCIDENT [None]
  - CONVULSION [None]
  - INTERVERTEBRAL DISC PROTRUSION [None]
  - INTRACRANIAL ANEURYSM [None]
